FAERS Safety Report 25297630 (Version 4)
Quarter: 2025Q3

REPORT INFORMATION
  Report Type: Spontaneous
  Country: US (occurrence: US)
  Receive Date: 20250511
  Receipt Date: 20250902
  Transmission Date: 20251020
  Serious: Yes (Hospitalization, Other)
  Sender: BRISTOL-MYERS SQUIBB COMPANY
  Company Number: US-BRISTOL-MYERS SQUIBB COMPANY-2025-064078

PATIENT
  Age: 85 Year
  Sex: Female
  Weight: 51.71 kg

DRUGS (2)
  1. REVLIMID [Suspect]
     Active Substance: LENALIDOMIDE
     Indication: Myelodysplastic syndrome
     Dosage: ONCE DAILY FOR 21 DAYS ON, 7 OFF
     Route: 048
     Dates: start: 20250321
  2. REVLIMID [Suspect]
     Active Substance: LENALIDOMIDE
     Route: 048

REACTIONS (7)
  - Decreased appetite [Recovering/Resolving]
  - Atrial fibrillation [Unknown]
  - Neutropenia [Unknown]
  - Weight decreased [Unknown]
  - Thyroid disorder [Unknown]
  - Joint swelling [Recovering/Resolving]
  - Product distribution issue [Unknown]

NARRATIVE: CASE EVENT DATE: 20250101
